FAERS Safety Report 9780382 (Version 1)
Quarter: 2013Q4

REPORT INFORMATION
  Report Type: Spontaneous
  Country: US (occurrence: US)
  Receive Date: 20131224
  Receipt Date: 20131224
  Transmission Date: 20140711
  Serious: Yes (Death)
  Sender: FDA-Public Use
  Company Number: US-BIOGENIDEC-2013BI121129

PATIENT
  Sex: Female

DRUGS (4)
  1. AVONEX [Suspect]
     Indication: MULTIPLE SCLEROSIS
     Route: 030
     Dates: start: 20110314
  2. DITROPAN XL [Concomitant]
  3. METHENAMINE HIPPURATE [Concomitant]
  4. TIZANIDINE HCL [Concomitant]

REACTIONS (1)
  - Death [Fatal]
